FAERS Safety Report 7893615-X (Version None)
Quarter: 2011Q4

REPORT INFORMATION
  Report Type: 
  Country: None (occurrence: None)
  Receive Date: 20111104
  Receipt Date: 20111031
  Transmission Date: 20120403
  Serious: Yes (Death, Hospitalization)
  Sender: FDA-Public Use
  Company Number: US-GLAXOSMITHKLINE-A0951591A

PATIENT
  Age: 86 Year
  Sex: Male

DRUGS (2)
  1. COREG CR [Suspect]
     Indication: PRODUCT USED FOR UNKNOWN INDICATION
     Dosage: 20MG IN THE MORNING
     Route: 048
  2. UNKNOWN [Concomitant]

REACTIONS (2)
  - DEATH [None]
  - CARDIAC ARREST [None]
